FAERS Safety Report 12088983 (Version 15)
Quarter: 2018Q4

REPORT INFORMATION
  Report Type: Report from Study
  Country: CA (occurrence: CA)
  Receive Date: 20160218
  Receipt Date: 20181221
  Transmission Date: 20190204
  Serious: Yes (Other)
  Sender: FDA-Public Use
  Company Number: PHHY2014CA083699

PATIENT
  Age: 50 Year
  Sex: Male

DRUGS (2)
  1. VALSARTAN. [Suspect]
     Active Substance: VALSARTAN
     Indication: PRODUCT USED FOR UNKNOWN INDICATION
     Dosage: 80 MG, QD
     Route: 065
     Dates: start: 20170215
  2. SANDOSTATIN LAR DEPOT [Suspect]
     Active Substance: OCTREOTIDE ACETATE
     Indication: NEUROENDOCRINE CARCINOMA
     Dosage: 30 MG, QMO (EVERY 4 WEEKS)
     Route: 030
     Dates: start: 20120701

REACTIONS (16)
  - Hepatic cancer [Unknown]
  - Body temperature decreased [Unknown]
  - Neoplasm progression [Unknown]
  - Nephrolithiasis [Unknown]
  - Blood pressure increased [Unknown]
  - Stress [Unknown]
  - Malignant neoplasm progression [Unknown]
  - Ear infection [Unknown]
  - Fatigue [Unknown]
  - Sinusitis [Unknown]
  - Insomnia [Unknown]
  - Blood pressure diastolic decreased [Unknown]
  - Oral disorder [Unknown]
  - Heart rate decreased [Unknown]
  - Lower respiratory tract infection [Unknown]
  - Blood pressure systolic increased [Unknown]

NARRATIVE: CASE EVENT DATE: 20140606
